FAERS Safety Report 12904328 (Version 5)
Quarter: 2017Q1

REPORT INFORMATION
  Report Type: Report from Study
  Country: US (occurrence: US)
  Receive Date: 20161102
  Receipt Date: 20170330
  Transmission Date: 20170428
  Serious: Yes (Hospitalization)
  Sender: FDA-Public Use
  Company Number: US-TAKEDA-2016MPI009393

PATIENT
  Sex: Female
  Weight: 61.67 kg

DRUGS (2)
  1. IXAZOMIB [Suspect]
     Active Substance: IXAZOMIB
     Indication: PLASMA CELL MYELOMA
     Dosage: 4 MG, UNK
     Route: 048
  2. IXAZOMIB [Suspect]
     Active Substance: IXAZOMIB
     Dosage: 3 MG, UNK
     Route: 048
     Dates: start: 20160805, end: 20161010

REACTIONS (4)
  - Diarrhoea [Unknown]
  - Drug dose omission [Unknown]
  - Blood test abnormal [Unknown]
  - Hospitalisation [Recovered/Resolved]
